FAERS Safety Report 14784362 (Version 3)
Quarter: 2018Q2

REPORT INFORMATION
  Report Type: Spontaneous
  Country: US (occurrence: US)
  Receive Date: 20180420
  Receipt Date: 20180530
  Transmission Date: 20180711
  Serious: Yes (Hospitalization, Other)
  Sender: FDA-Public Use
  Company Number: US-GLENMARK PHARMACEUTICALS-2018GMK034483

PATIENT
  Age: 70 Year
  Sex: Male

DRUGS (6)
  1. AMITRIPTYLINE [Concomitant]
     Active Substance: AMITRIPTYLINE
     Indication: TREMOR
  2. GABAPENTIN. [Suspect]
     Active Substance: GABAPENTIN
     Indication: TREMOR
  3. ALPRAZOLAM. [Concomitant]
     Active Substance: ALPRAZOLAM
     Indication: ATAXIA
     Dosage: UNK
     Route: 065
  4. AMITRIPTYLINE [Concomitant]
     Active Substance: AMITRIPTYLINE
     Indication: ATAXIA
     Dosage: UNK
     Route: 065
  5. ALPRAZOLAM. [Concomitant]
     Active Substance: ALPRAZOLAM
     Indication: TREMOR
  6. GABAPENTIN. [Suspect]
     Active Substance: GABAPENTIN
     Indication: ATAXIA
     Dosage: UNK, OVERDOSE
     Route: 065

REACTIONS (8)
  - Delirium [Recovered/Resolved]
  - Urinary retention [Recovered/Resolved]
  - Acute kidney injury [Unknown]
  - Myoclonus [Recovered/Resolved]
  - Tremor [Recovered/Resolved]
  - Toxicity to various agents [Recovered/Resolved]
  - Overdose [Unknown]
  - Ataxia [Recovered/Resolved]
